FAERS Safety Report 7467883-2 (Version None)
Quarter: 2011Q2

REPORT INFORMATION
  Report Type: 
  Country: None (occurrence: None)
  Receive Date: 20110509
  Receipt Date: 20110214
  Transmission Date: 20111010
  Serious: No
  Sender: FDA-Public Use
  Company Number: US-ALEXION-A201100180

PATIENT
  Age: 83 Year
  Sex: Female

DRUGS (8)
  1. CALCIUM [Concomitant]
  2. GARLIC                             /01570501/ [Concomitant]
  3. OCUVITE                            /01053801/ [Concomitant]
  4. FOLIC ACID [Concomitant]
  5. VITAMIN A [Concomitant]
  6. PRILOSEC [Concomitant]
  7. SYNTHROID [Concomitant]
  8. SOLIRIS [Suspect]
     Indication: PAROXYSMAL NOCTURNAL HAEMOGLOBINURIA
     Dosage: UNK
     Route: 042

REACTIONS (4)
  - HAEMOGLOBIN DECREASED [None]
  - PLATELET COUNT DECREASED [None]
  - EYE INFLAMMATION [None]
  - CHILLS [None]
